FAERS Safety Report 6603579-4 (Version None)
Quarter: 2010Q1

REPORT INFORMATION
  Report Type: 
  Country: None (occurrence: None)
  Receive Date: 20100226
  Receipt Date: 20091026
  Transmission Date: 20100710
  Serious: No
  Sender: FDA-Public Use
  Company Number: A0813377A

PATIENT
  Age: 53 Year
  Sex: Male

DRUGS (2)
  1. VALTREX [Suspect]
     Dosage: 2G TWICE PER DAY
     Route: 048
     Dates: start: 20091020, end: 20091025
  2. NO CONCURRENT MEDICATION [Concomitant]

REACTIONS (5)
  - BACK PAIN [None]
  - DYSURIA [None]
  - MICTURITION URGENCY [None]
  - NAUSEA [None]
  - VOMITING [None]
